FAERS Safety Report 4000005 (Version 2)
Quarter: 2017Q3

REPORT INFORMATION
  Report Type: Report from Study
  Country: BR (occurrence: BR)
  Receive Date: 20030917
  Receipt Date: 20170707
  Transmission Date: 20171128
  Serious: Yes (Other)
  Sender: FDA-Public Use
  Company Number: BR-BRISTOL-MYERS SQUIBB COMPANY-12377065

PATIENT

DRUGS (3)
  1. VINORELBINE [Suspect]
     Active Substance: VINORELBINE\VINORELBINE TARTRATE
     Indication: NON-SMALL CELL LUNG CANCER
     Dosage: 25 MG/M2, UNK
     Route: 042
  2. CISPLATIN. [Suspect]
     Active Substance: CISPLATIN
     Indication: NON-SMALL CELL LUNG CANCER
     Dosage: 100 MG/M2, UNK
     Route: 042
  3. BEXAROTENE. [Suspect]
     Active Substance: BEXAROTENE
     Indication: NON-SMALL CELL LUNG CANCER
     Dosage: 400 MG/M2, UNK
     Route: 048

REACTIONS (3)
  - Meningitis bacterial [Unknown]
  - Aphasia [Unknown]
  - Confusional state [Unknown]
